FAERS Safety Report 8932102 (Version 1)
Quarter: 2012Q4

REPORT INFORMATION
  Report Type: 
  Country: CH (occurrence: CH)
  Receive Date: 20121128
  Receipt Date: 20121128
  Transmission Date: 20130627
  Serious: Yes (Hospitalization)
  Sender: FDA-Public Use
  Company Number: CH-BAYER-2012-124171

PATIENT
  Age: 46 Year
  Sex: Male

DRUGS (1)
  1. BETAFERON [Suspect]
     Indication: MS
     Dosage: 8 iu, QOD
     Route: 058
     Dates: start: 2008, end: 201205

REACTIONS (1)
  - Sepsis [Recovered/Resolved]
